FAERS Safety Report 12520761 (Version 3)
Quarter: 2016Q3

REPORT INFORMATION
  Report Type: Report from Study
  Country: US (occurrence: US)
  Receive Date: 20160701
  Receipt Date: 20160802
  Transmission Date: 20161109
  Serious: No
  Sender: FDA-Public Use
  Company Number: PHEH2016US016199

PATIENT
  Age: 36 Year
  Sex: Male
  Weight: 79.37 kg

DRUGS (2)
  1. COSENTYX [Suspect]
     Active Substance: SECUKINUMAB
     Dosage: 300 MG, QW
     Route: 058
     Dates: start: 20160630
  2. COSENTYX [Suspect]
     Active Substance: SECUKINUMAB
     Indication: PSORIATIC ARTHROPATHY
     Dosage: 150 MG, QW
     Route: 058
     Dates: start: 20160623

REACTIONS (6)
  - Injection site pain [Recovered/Resolved]
  - Incorrect route of drug administration [Unknown]
  - Frustration tolerance decreased [Unknown]
  - Irritability [Unknown]
  - Screaming [Unknown]
  - Personality change [Unknown]

NARRATIVE: CASE EVENT DATE: 20160623
